FAERS Safety Report 11927663 (Version 1)
Quarter: 2016Q1

REPORT INFORMATION
  Report Type: Spontaneous
  Country: US (occurrence: US)
  Receive Date: 20160119
  Receipt Date: 20160119
  Transmission Date: 20160526
  Serious: No
  Sender: FDA-Public Use
  Company Number: US-PFIZER INC-2015465494

PATIENT
  Age: 32 Year
  Sex: Female
  Weight: 58.6 kg

DRUGS (1)
  1. ADVIL [Suspect]
     Active Substance: IBUPROFEN
     Indication: DYSMENORRHOEA
     Dosage: 400 MG, UNK
     Route: 048

REACTIONS (10)
  - Mydriasis [Recovering/Resolving]
  - Drug ineffective [Unknown]
  - Mouth swelling [Unknown]
  - Throat tightness [Unknown]
  - Gait disturbance [Unknown]
  - Swelling face [Recovered/Resolved]
  - Feeling abnormal [Unknown]
  - Vertigo [Unknown]
  - Impaired work ability [Unknown]
  - Dizziness [Recovering/Resolving]

NARRATIVE: CASE EVENT DATE: 2015
